FAERS Safety Report 12842660 (Version 11)
Quarter: 2017Q4

REPORT INFORMATION
  Report Type: Spontaneous
  Country: US (occurrence: US)
  Receive Date: 20161013
  Receipt Date: 20171226
  Transmission Date: 20180320
  Serious: Yes (Congenital Anomaly, Other)
  Sender: FDA-Public Use
  Company Number: PHEH2016US026353

PATIENT
  Sex: Male

DRUGS (1)
  1. ZOFRAN ODT [Suspect]
     Active Substance: ONDANSETRON HYDROCHLORIDE
     Indication: FOETAL EXPOSURE DURING PREGNANCY
     Dosage: MOTHER^S DOSE: 8 MG, UNK
     Route: 064

REACTIONS (34)
  - Craniofacial deformity [Unknown]
  - Tinea capitis [Unknown]
  - Pyrexia [Unknown]
  - Adrenogenital syndrome [Unknown]
  - Alopecia [Unknown]
  - Cough [Unknown]
  - Wound [Unknown]
  - Hypermetropia [Unknown]
  - Dermatitis atopic [Unknown]
  - Dysuria [Unknown]
  - Attention deficit/hyperactivity disorder [Unknown]
  - Rhinitis allergic [Unknown]
  - Speech disorder [Unknown]
  - Constipation [Unknown]
  - Pharyngitis [Unknown]
  - Cleft lip and palate [Unknown]
  - Developmental delay [Unknown]
  - Emotional distress [Unknown]
  - Upper respiratory tract infection [Unknown]
  - Precocious puberty [Unknown]
  - Trichophytosis [Unknown]
  - Pain [Unknown]
  - Acne [Unknown]
  - Febrile convulsion [Unknown]
  - Foetal exposure during pregnancy [Unknown]
  - Injury [Unknown]
  - Eye injury [Unknown]
  - Otitis media acute [Unknown]
  - Muscle spasms [Unknown]
  - Chronic sinusitis [Unknown]
  - Deformity [Unknown]
  - Eczema [Unknown]
  - Prepuce redundant [Unknown]
  - Dermatophytosis [Unknown]
